FAERS Safety Report 9239999 (Version 2)
Quarter: 2013Q2

REPORT INFORMATION
  Report Type: Spontaneous
  Country: GB (occurrence: GB)
  Receive Date: 20130418
  Receipt Date: 20130508
  Transmission Date: 20140414
  Serious: Yes (Hospitalization)
  Sender: FDA-Public Use
  Company Number: GB-GLAXOSMITHKLINE-B0882676A

PATIENT
  Age: 28 Year
  Sex: Female

DRUGS (5)
  1. ONDANSETRON [Suspect]
     Indication: PRODUCT USED FOR UNKNOWN INDICATION
  2. ENOXAPARIN [Suspect]
     Indication: PRODUCT USED FOR UNKNOWN INDICATION
  3. DICLOFENAC SODIUM [Suspect]
     Indication: PRODUCT USED FOR UNKNOWN INDICATION
  4. VALOID INJECTION [Suspect]
     Indication: MALAISE
  5. BACLOFEN [Suspect]
     Indication: PRODUCT USED FOR UNKNOWN INDICATION

REACTIONS (11)
  - Chest pain [Recovering/Resolving]
  - Gastrointestinal disorder [Recovering/Resolving]
  - Blood pressure decreased [Recovering/Resolving]
  - Dizziness [Recovering/Resolving]
  - Insomnia [Recovering/Resolving]
  - Panic reaction [Recovering/Resolving]
  - Wrong technique in drug usage process [Unknown]
  - Ageusia [None]
  - Anxiety [None]
  - Tremor [None]
  - Electrocardiogram abnormal [None]
